FAERS Safety Report 9848575 (Version 1)
Quarter: 2014Q1

REPORT INFORMATION
  Report Type: Spontaneous
  Country: US (occurrence: None)
  Receive Date: 20140124
  Receipt Date: 20140124
  Transmission Date: 20141002
  Serious: Yes (Other)
  Sender: FDA-Public Use
  Company Number: None

PATIENT
  Age: 54 Year
  Sex: Female
  Weight: 48.08 kg

DRUGS (2)
  1. AZATHIOPRINE [Suspect]
     Indication: COLITIS ULCERATIVE
     Route: 048
     Dates: start: 20131201
  2. AZATHIOPRINE [Suspect]
     Route: 048
     Dates: start: 20131226

REACTIONS (4)
  - Rectal haemorrhage [None]
  - Irritable bowel syndrome [None]
  - Diarrhoea [None]
  - Abdominal pain [None]
